FAERS Safety Report 18231945 (Version 1)
Quarter: 2020Q3

REPORT INFORMATION
  Report Type: Spontaneous
  Country: NL (occurrence: NL)
  Receive Date: 20200904
  Receipt Date: 20200904
  Transmission Date: 20201103
  Serious: Yes (Hospitalization)
  Sender: FDA-Public Use
  Company Number: NL-MYLANLABS-2020M1076538

PATIENT
  Sex: Male
  Weight: 82 kg

DRUGS (4)
  1. HYDROCHLOROTHIAZIDE MYLAN [Suspect]
     Active Substance: HYDROCHLOROTHIAZIDE
     Indication: DIURETIC THERAPY
     Dosage: 12.5 MILLIGRAM, QD(1 X PER DAG, 12.5 MG)
     Dates: start: 2012
  2. METOPROLOL                         /00376903/ [Concomitant]
     Active Substance: METOPROLOL SUCCINATE
     Dosage: 25 MILLIGRAM(TABLET MET GEREGULEERDE AFGIFTE, 25 MG (MILLIGRAM))
  3. ATORVASTATINE                      /01326101/ [Concomitant]
     Active Substance: ATORVASTATIN
     Dosage: TABLET, 20 MG (MILLIGRAM)
  4. LOSARTAN. [Concomitant]
     Active Substance: LOSARTAN
     Dosage: 100 MILLIGRAM(FILMOMHULDE TABLET, 100 MG (MILLIGRAM))

REACTIONS (2)
  - Pancreatitis [Recovering/Resolving]
  - Body temperature increased [Recovering/Resolving]
